FAERS Safety Report 4270013-1 (Version None)
Quarter: 2004Q1

REPORT INFORMATION
  Report Type: 
  Country: None (occurrence: None)
  Receive Date: 20040113
  Receipt Date: 20040113
  Transmission Date: 20041129
  Serious: Yes (Other)
  Sender: FDA-Public Use
  Company Number: None

PATIENT
  Age: 70 Year
  Sex: Male
  Weight: 87.771 kg

DRUGS (4)
  1. ELLENCE [Suspect]
     Indication: GASTRIC CANCER
     Dosage: 103 MG IVP
     Route: 042
     Dates: start: 20040105
  2. ANZEMET [Concomitant]
  3. DECADRON [Concomitant]
  4. ATIVAN [Concomitant]

REACTIONS (3)
  - FLUSHING [None]
  - SENSATION OF PRESSURE [None]
  - VOMITING [None]
